FAERS Safety Report 8474247-1 (Version None)
Quarter: 2012Q2

REPORT INFORMATION
  Report Type: 
  Country: None (occurrence: None)
  Receive Date: 20120628
  Receipt Date: 20120618
  Transmission Date: 20120825
  Serious: Yes (Other)
  Sender: FDA-Public Use
  Company Number: ES-MPIJNJ-2012-01574

PATIENT

DRUGS (7)
  1. LEVODOPA [Concomitant]
     Indication: PARKINSON'S DISEASE
     Dosage: 450 MG, QD
     Dates: start: 20060101
  2. DEXAMETHASONE [Suspect]
     Indication: MULTIPLE MYELOMA
     Dosage: 40 MG, UNK
     Route: 048
     Dates: start: 20111219, end: 20120102
  3. LEVODOPA [Concomitant]
     Dosage: 575 MG, QD
  4. REVLIMID [Suspect]
     Indication: MULTIPLE MYELOMA
     Dosage: 25 MG, UNK
     Route: 048
     Dates: start: 20111219, end: 20120106
  5. VELCADE [Suspect]
     Indication: MULTIPLE MYELOMA
     Dosage: 2.3 MG, UNK
     Route: 042
     Dates: start: 20120116, end: 20120123
  6. PREDNISONE TAB [Suspect]
     Indication: MULTIPLE MYELOMA
     Dosage: 90 MG, UNK
     Route: 048
     Dates: start: 20120116, end: 20120119
  7. MELPHALAN HYDROCHLORIDE [Suspect]
     Indication: MULTIPLE MYELOMA
     Dosage: 16 MG, UNK
     Route: 048
     Dates: start: 20120116, end: 20120119

REACTIONS (2)
  - CONDITION AGGRAVATED [None]
  - PARKINSON'S DISEASE [None]
